FAERS Safety Report 20978065 (Version 4)
Quarter: 2022Q2

REPORT INFORMATION
  Report Type: Spontaneous
  Country: BR (occurrence: BR)
  Receive Date: 20220618
  Receipt Date: 20220628
  Transmission Date: 20220720
  Serious: Yes (Death, Life-Threatening, Hospitalization)
  Sender: FDA-Public Use
  Company Number: BR-BIOMARINAP-BR-2022-143839

PATIENT

DRUGS (1)
  1. VIMIZIM [Suspect]
     Active Substance: ELOSULFASE ALFA
     Indication: Mucopolysaccharidosis IV
     Dosage: UNK, QW
     Route: 042
     Dates: start: 2016

REACTIONS (9)
  - Respiratory tract infection [Fatal]
  - Bronchitis [Recovered/Resolved]
  - Respiratory failure [Recovered/Resolved]
  - Productive cough [Recovered/Resolved]
  - Oxygen saturation decreased [Recovered/Resolved]
  - Dyspnoea [Recovered/Resolved]
  - Pyrexia [Recovered/Resolved]
  - Pneumonia [Recovered/Resolved]
  - Severe acute respiratory syndrome [Recovered/Resolved]

NARRATIVE: CASE EVENT DATE: 20220601
